FAERS Safety Report 19977565 (Version 2)
Quarter: 2021Q4

REPORT INFORMATION
  Report Type: Spontaneous
  Country: US (occurrence: US)
  Receive Date: 20211020
  Receipt Date: 20211020
  Transmission Date: 20220303
  Serious: No
  Sender: FDA-Public Use
  Company Number: US-ALLERGAN-2115733US

PATIENT
  Sex: Male

DRUGS (7)
  1. LINZESS [Suspect]
     Active Substance: LINACLOTIDE
     Indication: Gastrointestinal hypomotility
     Dosage: 72 ?G
     Dates: start: 202103
  2. LINZESS [Suspect]
     Active Substance: LINACLOTIDE
     Indication: Constipation
     Dosage: 145 ?G, QAM, BEFORE BREAKFAST
     Route: 048
     Dates: start: 20210415
  3. FINASTERIDE [Concomitant]
     Active Substance: FINASTERIDE
  4. CRESTOR [Concomitant]
     Active Substance: ROSUVASTATIN CALCIUM
     Dosage: 5 MG
     Route: 048
  5. CLOMID [Concomitant]
     Active Substance: CLOMIPHENE CITRATE
     Dosage: 25 MG EVERY OTHER DAY
     Route: 048
  6. TEMAZEPAM [Concomitant]
     Active Substance: TEMAZEPAM
     Dosage: 30 MG, BI-WEEKLY
  7. HYDROXYZINE [Concomitant]
     Active Substance: HYDROXYZINE HYDROCHLORIDE
     Dosage: 10 MG, BID

REACTIONS (3)
  - Circumstance or information capable of leading to medication error [Unknown]
  - Product physical issue [Unknown]
  - Therapeutic product effect incomplete [Unknown]
